FAERS Safety Report 20095388 (Version 1)
Quarter: 2021Q4

REPORT INFORMATION
  Report Type: Spontaneous
  Country: US (occurrence: US)
  Receive Date: 20211122
  Receipt Date: 20211122
  Transmission Date: 20220303
  Serious: Yes (Other)
  Sender: FDA-Public Use
  Company Number: US-VALIDUS PHARMACEUTICALS LLC-US-VDP-2021-014610

PATIENT

DRUGS (5)
  1. LASIX [Suspect]
     Active Substance: FUROSEMIDE
     Indication: Joint swelling
     Dosage: 20 MG, QD
     Route: 048
     Dates: start: 2021, end: 20211010
  2. LASIX [Suspect]
     Active Substance: FUROSEMIDE
     Indication: Peripheral swelling
  3. HYDROXYCHLOROQUINE SULFATE [Suspect]
     Active Substance: HYDROXYCHLOROQUINE SULFATE
     Indication: Rheumatoid arthritis
     Dosage: UNK
     Route: 065
  4. METHOTREXATE [Suspect]
     Active Substance: METHOTREXATE
     Indication: Rheumatoid arthritis
     Dosage: UNK
     Route: 065
  5. VITAMINS [Concomitant]
     Active Substance: VITAMINS
     Indication: Product used for unknown indication
     Dosage: UNK
     Route: 065

REACTIONS (10)
  - Cerebrovascular accident [Not Recovered/Not Resolved]
  - Atrial fibrillation [Unknown]
  - Respiratory disorder [Unknown]
  - Arthralgia [Recovered/Resolved]
  - Pain [Unknown]
  - Joint swelling [Recovered/Resolved]
  - Peripheral swelling [Recovering/Resolving]
  - Erythema [Unknown]
  - Gout [Recovering/Resolving]
  - Weight increased [Unknown]

NARRATIVE: CASE EVENT DATE: 20210101
